FAERS Safety Report 4586519-1 (Version None)
Quarter: 2005Q1

REPORT INFORMATION
  Report Type: 
  Country: None (occurrence: None)
  Receive Date: 20050218
  Receipt Date: 20030708
  Transmission Date: 20050727
  Serious: Yes (Hospitalization, Other)
  Sender: FDA-Public Use
  Company Number: US-BRISTOL-MYERS SQUIBB COMPANY-12320784

PATIENT
  Age: 53 Year
  Sex: Male

DRUGS (6)
  1. PACLITAXEL [Suspect]
     Indication: NEOPLASM MALIGNANT
     Dosage: REDUCED TO 80 MG/M^2
     Route: 042
     Dates: start: 20020501, end: 20020601
  2. CARBOPLATIN [Concomitant]
     Indication: NEOPLASM MALIGNANT
     Dosage: DOSE = AUC 6, THEN AUC 4
     Dates: start: 20020501, end: 20020601
  3. DARVOCET [Concomitant]
  4. DIPHENHYDRAMINE HCL [Concomitant]
     Indication: PREMEDICATION
  5. RANITIDINE [Concomitant]
     Indication: PREMEDICATION
  6. DEXAMETHASONE [Concomitant]
     Indication: PREMEDICATION

REACTIONS (3)
  - BONE MARROW DEPRESSION [None]
  - DEHYDRATION [None]
  - SKIN ULCER [None]
